FAERS Safety Report 6659064-7 (Version None)
Quarter: 2010Q1

REPORT INFORMATION
  Report Type: 
  Country: None (occurrence: None)
  Receive Date: 20100324
  Receipt Date: 20100311
  Transmission Date: 20100710
  Serious: Yes (Other)
  Sender: FDA-Public Use
  Company Number: 2010SP007657

PATIENT
  Age: 36 Year
  Sex: Female

DRUGS (7)
  1. NUVARING [Suspect]
     Indication: CONTRACEPTION
     Dates: start: 20050901, end: 20100124
  2. ZITHROMAX [Suspect]
     Indication: RESPIRATORY TRACT INFECTION
     Dates: start: 20100115, end: 20100117
  3. SALOFALK [Concomitant]
  4. CORTICOSTEROIDS [Concomitant]
  5. SERETAIDE [Concomitant]
  6. XENICAL [Concomitant]
  7. SINGULAIR [Concomitant]

REACTIONS (3)
  - PREMATURE SEPARATION OF PLACENTA [None]
  - RESPIRATORY TRACT INFECTION [None]
  - UNINTENDED PREGNANCY [None]
